FAERS Safety Report 19667600 (Version 1)
Quarter: 2021Q3

REPORT INFORMATION
  Report Type: Spontaneous
  Country: JP (occurrence: JP)
  Receive Date: 20210806
  Receipt Date: 20210806
  Transmission Date: 20211014
  Serious: Yes (Other)
  Sender: FDA-Public Use
  Company Number: JP-SUN PHARMACEUTICAL INDUSTRIES LTD-2021R1-305628

PATIENT
  Age: 30 Year
  Sex: Female

DRUGS (3)
  1. PREDNISOLONE. [Concomitant]
     Active Substance: PREDNISOLONE
     Dosage: 17.5 MILLIGRAM, DAILY
     Route: 048
  2. HYDROXYCHLOROQUINE [Suspect]
     Active Substance: HYDROXYCHLOROQUINE
     Indication: SYSTEMIC LUPUS ERYTHEMATOSUS
     Dosage: 200 MILLIGRAM, DAILY
     Route: 065
  3. PREDNISOLONE. [Concomitant]
     Active Substance: PREDNISOLONE
     Indication: SYSTEMIC LUPUS ERYTHEMATOSUS
     Dosage: 30 MILLIGRAM, DAILY
     Route: 048

REACTIONS (1)
  - Pustular psoriasis [Unknown]
